FAERS Safety Report 5713478-8 (Version None)
Quarter: 2008Q2

REPORT INFORMATION
  Report Type: 
  Country: None (occurrence: None)
  Receive Date: 20080422
  Receipt Date: 20080421
  Transmission Date: 20081010
  Serious: Yes (Disabling)
  Sender: FDA-Public Use
  Company Number: US-BOEHRINGER INGELHEIM GMBH, GERMANY-2008-BP-04716RO

PATIENT
  Sex: Female

DRUGS (11)
  1. CALCITRIOL [Suspect]
     Indication: VITAMIN D DECREASED
     Route: 048
     Dates: start: 20070822, end: 20070910
  2. BACTRIM [Concomitant]
  3. LIPITOR [Concomitant]
  4. MULTI-VITAMIN [Concomitant]
  5. NEXIUM [Concomitant]
  6. PREDNISONE [Concomitant]
  7. PREDNISONE [Concomitant]
  8. PROGRAF [Concomitant]
  9. PROGRAF [Concomitant]
  10. TEMAZEPAM [Concomitant]
  11. TYLENOL PM EXTRA STRENGTH [Concomitant]

REACTIONS (17)
  - ANOREXIA [None]
  - ARRHYTHMIA [None]
  - ASTHENIA [None]
  - BLOOD CHOLESTEROL INCREASED [None]
  - BONE PAIN [None]
  - CONJUNCTIVITIS [None]
  - DRY MOUTH [None]
  - GAMMA-GLUTAMYLTRANSFERASE INCREASED [None]
  - LIVER FUNCTION TEST ABNORMAL [None]
  - MYALGIA [None]
  - NOCTURIA [None]
  - POLLAKIURIA [None]
  - RHINORRHOEA [None]
  - SOMNOLENCE [None]
  - URINARY TRACT INFECTION [None]
  - VOMITING [None]
  - WEIGHT DECREASED [None]
